FAERS Safety Report 10379466 (Version 1)
Quarter: 2014Q3

REPORT INFORMATION
  Report Type: Spontaneous
  Country: US (occurrence: None)
  Receive Date: 20140808
  Receipt Date: 20140808
  Transmission Date: 20150326
  Serious: Yes (Other)
  Sender: FDA-Public Use
  Company Number: INT_00389_2014

PATIENT
  Sex: Male

DRUGS (2)
  1. CISPLATIN. [Suspect]
     Active Substance: CISPLATIN
     Indication: ACTH-PRODUCING PITUITARY TUMOUR
     Dosage: (80 MG/MG, [EVERY 3 WEEKS; 3 CYCLES])
     Dates: start: 201107, end: 2011
  2. ETOPOSIDE. [Suspect]
     Active Substance: ETOPOSIDE
     Indication: ACTH-PRODUCING PITUITARY TUMOUR
     Dates: start: 201107

REACTIONS (4)
  - Secondary adrenocortical insufficiency [None]
  - Adrenocortical insufficiency acute [None]
  - Convulsion [None]
  - Metastases to meninges [None]

NARRATIVE: CASE EVENT DATE: 201109
